FAERS Safety Report 18697763 (Version 1)
Quarter: 2021Q1

REPORT INFORMATION
  Report Type: Spontaneous
  Country: NO (occurrence: NO)
  Receive Date: 20210105
  Receipt Date: 20210105
  Transmission Date: 20210419
  Serious: Yes (Other)
  Sender: FDA-Public Use
  Company Number: NO-ABBVIE-21K-122-3714527-00

PATIENT
  Age: 57 Year
  Sex: Female

DRUGS (3)
  1. HYRIMOZ [Suspect]
     Active Substance: ADALIMUMAB-ADAZ
     Indication: SPONDYLITIS
     Dosage: 40 MG EVERY 2ND WEEK, 40 MG EVERY 3RD WEEK
     Route: 058
     Dates: start: 20200623, end: 202007
  2. HUMIRA [Suspect]
     Active Substance: ADALIMUMAB
     Dosage: 40 MG EVERY 2ND WEEK, 40 MG EVERY 3RD WEEK
     Route: 058
     Dates: start: 20200727
  3. HUMIRA [Suspect]
     Active Substance: ADALIMUMAB
     Indication: SPONDYLITIS
     Route: 058
     Dates: start: 201911, end: 202003

REACTIONS (7)
  - Oropharyngeal pain [Recovered/Resolved]
  - Malaise [Recovered/Resolved]
  - Fatigue [Recovering/Resolving]
  - Spinal pain [Recovered/Resolved]
  - Pyrexia [Recovered/Resolved]
  - Tinnitus [Recovering/Resolving]
  - Myalgia [Recovered/Resolved]

NARRATIVE: CASE EVENT DATE: 201912
